FAERS Safety Report 8899569 (Version 1)
Quarter: 2012Q4

REPORT INFORMATION
  Report Type: 
  Country: US (occurrence: US)
  Receive Date: 20121108
  Receipt Date: 20121108
  Transmission Date: 20130627
  Serious: No
  Sender: FDA-Public Use
  Company Number: US-AMGEN-USASP2012035627

PATIENT
  Age: 69 Year
  Sex: Female
  Weight: 70.3 kg

DRUGS (16)
  1. ENBREL [Suspect]
     Indication: PRODUCT USED FOR UNKNOWN INDICATION
     Dosage: 50 mg, qwk
  2. CELEBREX [Concomitant]
     Dosage: 100 mg, UNK
  3. CARTIA                             /00002701/ [Concomitant]
  4. BENICAR [Concomitant]
     Dosage: 20 mg, UNK
  5. FLUOXETINE [Concomitant]
     Dosage: 20 mg, UNK
  6. SPIRONOLACTON [Concomitant]
     Dosage: 100 mg, UNK
  7. SPIRIVA HANDIHALER [Concomitant]
  8. MULTIVITAMIN                       /00097801/ [Concomitant]
  9. PRAVASTATIN [Concomitant]
     Dosage: 10 mg, UNK
  10. BENZONATATE [Concomitant]
     Dosage: 100 mg, UNK
  11. ASPIRIN [Concomitant]
     Dosage: 81 mg, UNK
  12. LORATADINE [Concomitant]
     Dosage: 10 mg, UNK
  13. CALCIUM +D                         /00188401/ [Concomitant]
  14. VENTOLIN HFA [Concomitant]
  15. FLUTICASONE [Concomitant]
     Dosage: 50 mug, UNK
  16. MUCINEX [Concomitant]
     Dosage: 600 mg, UNK

REACTIONS (1)
  - Bronchitis [Unknown]
